FAERS Safety Report 12297746 (Version 4)
Quarter: 2016Q2

REPORT INFORMATION
  Report Type: Report from Study
  Country: US (occurrence: US)
  Receive Date: 20160422
  Receipt Date: 20160622
  Transmission Date: 20160815
  Serious: Yes (Other)
  Sender: FDA-Public Use
  Company Number: US-AMGEN-USASL2016049657

PATIENT
  Age: 69 Year
  Sex: Female

DRUGS (2)
  1. ENBREL [Suspect]
     Active Substance: ETANERCEPT
     Dosage: 50 MG, QWK
     Route: 058
  2. ENBREL [Suspect]
     Active Substance: ETANERCEPT
     Indication: RHEUMATOID ARTHRITIS
     Dosage: 50 MG, QWK
     Route: 065

REACTIONS (13)
  - Meniscus injury [Unknown]
  - Circumstance or information capable of leading to medication error [Unknown]
  - Fall [Unknown]
  - Device issue [Unknown]
  - Interstitial lung disease [Unknown]
  - Spinal column stenosis [Unknown]
  - Diabetes mellitus [Unknown]
  - Drug effect decreased [Unknown]
  - Injection site pain [Unknown]
  - Arthropathy [Unknown]
  - Spinal fracture [Unknown]
  - Thrombosis [Unknown]
  - Weight increased [Recovering/Resolving]

NARRATIVE: CASE EVENT DATE: 2013
